FAERS Safety Report 21237312 (Version 3)
Quarter: 2022Q4

REPORT INFORMATION
  Report Type: Spontaneous
  Country: US (occurrence: US)
  Receive Date: 20220822
  Receipt Date: 20221122
  Transmission Date: 20230112
  Serious: No
  Sender: FDA-Public Use
  Company Number: US-PFIZER INC-202201070628

PATIENT
  Age: 57 Year
  Sex: Female

DRUGS (16)
  1. XELJANZ XR [Suspect]
     Active Substance: TOFACITINIB CITRATE
     Dosage: 11 MG, DAILY
     Route: 048
     Dates: start: 2021, end: 202208
  2. XELJANZ XR [Suspect]
     Active Substance: TOFACITINIB CITRATE
     Dosage: 11 MG, DAILY
     Route: 048
     Dates: start: 2021
  3. LEVOTHYROXINE [Concomitant]
     Active Substance: LEVOTHYROXINE
     Dosage: 75 UG, DAILY
     Route: 048
  4. FOLIC ACID [Concomitant]
     Active Substance: FOLIC ACID
     Dosage: 1 MG, DAILY
     Route: 048
  5. CALCIUM [Concomitant]
     Active Substance: CALCIUM
     Dosage: 600 MG, DAILY
  6. HERBALS\TURMERIC [Concomitant]
     Active Substance: HERBALS\TURMERIC
     Dosage: 400 MG, DAILY
  7. MODERNA COVID-19 VACCINE [Concomitant]
     Active Substance: ELASOMERAN
     Dosage: UNK
  8. CHOLECALCIFEROL\FISH OIL [Concomitant]
     Active Substance: CHOLECALCIFEROL\FISH OIL
     Dosage: 300-1000MG DAILY
  9. VITAMIN C [Concomitant]
     Active Substance: ASCORBIC ACID
     Dosage: 500 MG, DAILY
  10. COLLAGEN [ASCORBIC ACID;COLLAGEN] [Concomitant]
     Dosage: 125-740MG CAPSULE DAILY
  11. VITAMIN B12 [Concomitant]
     Active Substance: CYANOCOBALAMIN
     Dosage: 2500 MG, DAILY
  12. MELOXICAM [Concomitant]
     Active Substance: MELOXICAM
     Dosage: 15 MG, AS NEEDED
  13. MAGNESIUM CITRATE [Concomitant]
     Active Substance: MAGNESIUM CITRATE
     Dosage: 100 MG, DAILY
  14. OMEGA 3,6,9 [Concomitant]
     Dosage: 1200 MG, DAILY
  15. CHOLECALCIFEROL [Concomitant]
     Active Substance: CHOLECALCIFEROL
     Dosage: 10 UG, DAILY (VITAMIN D-400)
  16. PROBIOTICS NOS [Concomitant]
     Active Substance: PROBIOTICS NOS
     Dosage: UNK, 100 BCELL 1X/DAY

REACTIONS (9)
  - Drug ineffective [Unknown]
  - COVID-19 [Unknown]
  - Erythema [Not Recovered/Not Resolved]
  - Pain [Not Recovered/Not Resolved]
  - Muscular weakness [Not Recovered/Not Resolved]
  - Pain in extremity [Not Recovered/Not Resolved]
  - Arthralgia [Not Recovered/Not Resolved]
  - Dry eye [Not Recovered/Not Resolved]
  - Nasal dryness [Not Recovered/Not Resolved]

NARRATIVE: CASE EVENT DATE: 20220701
